FAERS Safety Report 9616770 (Version 2)
Quarter: 2013Q4

REPORT INFORMATION
  Report Type: Report from Study
  Country: JP (occurrence: JP)
  Receive Date: 20131011
  Receipt Date: 20131011
  Transmission Date: 20140711
  Serious: Yes (Death, Hospitalization, Other)
  Sender: FDA-Public Use
  Company Number: JP-SA-200912353BYL

PATIENT
  Age: 82 Year
  Sex: Male
  Weight: 46 kg

DRUGS (25)
  1. PREDNISOLONE [Suspect]
     Indication: MANTLE CELL LYMPHOMA STAGE III
     Route: 065
     Dates: start: 200607
  2. VINCRISTINE SULFATE [Suspect]
     Indication: MANTLE CELL LYMPHOMA STAGE III
     Dosage: INFUSION
     Route: 065
     Dates: start: 200607
  3. FLUDARABINE PHOSPHATE [Suspect]
     Indication: MANTLE CELL LYMPHOMA STAGE III
     Dosage: INFUSION
     Route: 042
     Dates: start: 200710
  4. FLUDARABINE PHOSPHATE [Suspect]
     Indication: MANTLE CELL LYMPHOMA STAGE III
     Dosage: INFUSION
     Route: 042
     Dates: start: 200808
  5. PIRARUBICIN [Suspect]
     Indication: MANTLE CELL LYMPHOMA STAGE III
     Dosage: INFUSION
     Route: 065
     Dates: start: 200607
  6. CYCLOPHOSPHAMIDE [Suspect]
     Indication: MANTLE CELL LYMPHOMA STAGE III
     Route: 065
     Dates: start: 200607
  7. CYCLOPHOSPHAMIDE [Suspect]
     Indication: MANTLE CELL LYMPHOMA STAGE III
     Route: 065
     Dates: start: 200808
  8. MITOXANTRONE [Suspect]
     Indication: MANTLE CELL LYMPHOMA STAGE III
     Route: 065
     Dates: start: 200808
  9. EVEROLIMUS [Suspect]
     Indication: MANTLE CELL LYMPHOMA STAGE III
     Route: 048
     Dates: start: 200806
  10. IBRITUMOMAB TIUXETAN [Suspect]
     Indication: MANTLE CELL LYMPHOMA STAGE III
     Dosage: 11.1MBQ/KG
     Route: 042
     Dates: start: 20081014, end: 20081014
  11. IBRITUMOMAB TIUXETAN [Suspect]
     Indication: MANTLE CELL LYMPHOMA STAGE III
     Route: 042
     Dates: start: 20081007, end: 20081007
  12. RITUXIMAB [Suspect]
     Indication: MANTLE CELL LYMPHOMA STAGE III
     Dosage: INFUSION
     Route: 065
     Dates: start: 200710
  13. RITUXIMAB [Suspect]
     Indication: MANTLE CELL LYMPHOMA STAGE III
     Dosage: INFUSION
     Route: 065
     Dates: start: 200607
  14. RITUXIMAB [Suspect]
     Indication: MANTLE CELL LYMPHOMA STAGE III
     Dosage: INFUSION
     Route: 065
     Dates: start: 200808
  15. RITUXIMAB [Suspect]
     Indication: MANTLE CELL LYMPHOMA STAGE III
     Dosage: INFUSION
     Route: 065
     Dates: start: 200703
  16. BAKTAR [Concomitant]
     Indication: PROPHYLAXIS
     Dosage: UNK, UNK
     Route: 048
     Dates: start: 20081007, end: 20081014
  17. LANSOPRAZOLE [Concomitant]
     Indication: PROPHYLAXIS
     Dosage: UNK, UNK
     Route: 048
     Dates: start: 20081007
  18. ZOVIRAX [Concomitant]
     Indication: PROPHYLAXIS
     Dosage: UNK, UNK
     Route: 048
     Dates: start: 20081007
  19. ISODINE [Concomitant]
     Indication: PROPHYLAXIS
     Dosage: MOUTHWASH
     Dates: start: 20081007
  20. PANTETHINE [Concomitant]
     Dosage: UNK, UNK
     Route: 048
     Dates: start: 20081007
  21. MAGNESIUM OXIDE [Concomitant]
     Dosage: UNK, UNK
     Route: 048
     Dates: start: 20081007
  22. OTHER ANALGESICS AND ANTIPYRETICS [Concomitant]
     Indication: PREMEDICATION
     Dates: start: 20081007, end: 20081007
  23. OTHER ANALGESICS AND ANTIPYRETICS [Concomitant]
     Indication: PREMEDICATION
     Dates: start: 20081014, end: 20081014
  24. ANTIHISTAMINES [Concomitant]
     Indication: PREMEDICATION
     Dates: start: 20081007, end: 20081007
  25. ANTIHISTAMINES [Concomitant]
     Indication: PREMEDICATION
     Dates: start: 20081014, end: 20081014

REACTIONS (6)
  - Mantle cell lymphoma [Fatal]
  - Cancer pain [Not Recovered/Not Resolved]
  - Myelodysplastic syndrome [Not Recovered/Not Resolved]
  - White blood cell count decreased [Not Recovered/Not Resolved]
  - Platelet count decreased [Not Recovered/Not Resolved]
  - Haemoglobin decreased [Not Recovered/Not Resolved]
